FAERS Safety Report 4648602-1 (Version None)
Quarter: 2005Q2

REPORT INFORMATION
  Report Type: 
  Country: None (occurrence: None)
  Receive Date: 20050427
  Receipt Date: 20050414
  Transmission Date: 20051028
  Serious: Yes (Hospitalization)
  Sender: FDA-Public Use
  Company Number: 2005061770

PATIENT
  Sex: 0

DRUGS (1)
  1. VIBRAMYCIN [Suspect]
     Indication: MALARIA PROPHYLAXIS
     Dosage: ORAL; 2-3 MONTHS
     Route: 048

REACTIONS (2)
  - HEADACHE [None]
  - PYREXIA [None]
